FAERS Safety Report 22011965 (Version 3)
Quarter: 2023Q1

REPORT INFORMATION
  Report Type: Spontaneous
  Country: US (occurrence: US)
  Receive Date: 20230220
  Receipt Date: 20230331
  Transmission Date: 20230417
  Serious: Yes (Other)
  Sender: FDA-Public Use
  Company Number: US-PFIZER INC-202300070260

PATIENT
  Age: 79 Year
  Sex: Male

DRUGS (1)
  1. TIKOSYN [Suspect]
     Active Substance: DOFETILIDE
     Indication: Arrhythmia
     Dosage: 500 MG, 2X/DAY

REACTIONS (5)
  - Deafness [Unknown]
  - Cardiogenic shock [Unknown]
  - Cardiac disorder [Unknown]
  - Body height decreased [Unknown]
  - Wrong strength [Unknown]
